FAERS Safety Report 25902975 (Version 1)
Quarter: 2025Q4

REPORT INFORMATION
  Report Type: Report from Study
  Country: EU (occurrence: EU)
  Receive Date: 20251009
  Receipt Date: 20251009
  Transmission Date: 20260117
  Serious: Yes (Hospitalization)
  Sender: EISAI
  Company Number: EU-Eisai-EC-2025-188423

PATIENT
  Age: 60 Year
  Sex: Male
  Weight: 61.55 kg

DRUGS (9)
  1. LENVATINIB [Suspect]
     Active Substance: LENVATINIB
     Indication: Small cell lung cancer extensive stage
     Dosage: UNKNOWN FREQUENCY
     Route: 048
     Dates: start: 20240507, end: 20250415
  2. LENVATINIB [Suspect]
     Active Substance: LENVATINIB
     Dosage: UNKNOWN FREQUENCY
     Route: 048
     Dates: start: 2025, end: 20250821
  3. PEMBROLIZUMAB [Suspect]
     Active Substance: PEMBROLIZUMAB
     Indication: Small cell lung cancer extensive stage
     Dosage: UNKNOWN FREQUENCY
     Route: 042
     Dates: start: 20240207, end: 20250415
  4. PEMBROLIZUMAB [Suspect]
     Active Substance: PEMBROLIZUMAB
     Dosage: UNKNOWN FREQUENCY
     Route: 042
     Dates: start: 2025, end: 20250814
  5. SERTRALINE [Concomitant]
     Active Substance: SERTRALINE HYDROCHLORIDE
     Dates: start: 20240213
  6. ZOLPIDEM [Concomitant]
     Active Substance: ZOLPIDEM TARTRATE
     Dates: start: 20240213
  7. PIMECROLIMUS [Concomitant]
     Active Substance: PIMECROLIMUS
     Dates: start: 20250220
  8. DOXICYCLINE [Concomitant]
     Dates: start: 20250220
  9. CALCIPOTRIOL+BETAMETHASONE [Concomitant]
     Dates: start: 20250220

REACTIONS (2)
  - Myocardial infarction [Recovered/Resolved]
  - Cardiac failure [Recovered/Resolved]

NARRATIVE: CASE EVENT DATE: 20250415
